FAERS Safety Report 18507231 (Version 2)
Quarter: 2020Q4

REPORT INFORMATION
  Report Type: Report from Study
  Country: US (occurrence: US)
  Receive Date: 20201116
  Receipt Date: 20201211
  Transmission Date: 20210114
  Serious: Yes (Hospitalization)
  Sender: FDA-Public Use
  Company Number: US-JNJFOC-20201126707

PATIENT
  Sex: Male
  Weight: 162.99 kg

DRUGS (2)
  1. EPOPROSTENOL SODIUM. [Suspect]
     Active Substance: EPOPROSTENOL SODIUM
     Indication: PULMONARY ARTERIAL HYPERTENSION
     Route: 042
  2. WARFARIN [Concomitant]
     Active Substance: WARFARIN

REACTIONS (6)
  - Underdose [Unknown]
  - Limb discomfort [Unknown]
  - Device occlusion [Unknown]
  - Device leakage [Not Recovered/Not Resolved]
  - Diarrhoea [Unknown]
  - Device failure [Unknown]
